FAERS Safety Report 8545067-4 (Version None)
Quarter: 2012Q3

REPORT INFORMATION
  Report Type: 
  Country: None (occurrence: None)
  Receive Date: 20120727
  Receipt Date: 20120725
  Transmission Date: 20120928
  Serious: Yes (Other)
  Sender: FDA-Public Use
  Company Number: IT-ROCHE-1092494

PATIENT
  Sex: Female

DRUGS (1)
  1. ROCEPHIN [Suspect]
     Indication: PRODUCT USED FOR UNKNOWN INDICATION
     Dosage: 1G/3.5 ML POWDER AND SOLVENT FOR SOLUTION
     Route: 030
     Dates: start: 20120317, end: 20120317

REACTIONS (2)
  - ACUTE RESPIRATORY FAILURE [None]
  - HYPERSENSITIVITY [None]
